FAERS Safety Report 14599601 (Version 1)
Quarter: 2018Q1

REPORT INFORMATION
  Report Type: Report from Study
  Country: FR (occurrence: FR)
  Receive Date: 20180305
  Receipt Date: 20180305
  Transmission Date: 20180509
  Serious: Yes (Hospitalization, Other)
  Sender: FDA-Public Use
  Company Number: FR-PFIZER INC-2018082070

PATIENT
  Age: 2 Year
  Sex: Male

DRUGS (9)
  1. METHOTREXATE. [Suspect]
     Active Substance: METHOTREXATE
     Indication: ACUTE LYMPHOCYTIC LEUKAEMIA
     Dosage: 10 MG, 1X/DAY:QD
     Route: 037
     Dates: start: 20171130, end: 20171228
  2. CYCLOPHOSPHAMIDE. [Suspect]
     Active Substance: CYCLOPHOSPHAMIDE
     Indication: ACUTE LYMPHOCYTIC LEUKAEMIA
     Dosage: 600 MG, 1X/DAY:QD
     Route: 042
     Dates: start: 20171127, end: 20171226
  3. CYTARABINE. [Suspect]
     Active Substance: CYTARABINE
     Indication: ACUTE LYMPHOCYTIC LEUKAEMIA
     Dosage: 46 MG, 1X/DAY:QD
     Route: 042
     Dates: start: 20171128
  4. HYDROCORTISONE. [Suspect]
     Active Substance: HYDROCORTISONE
     Indication: ACUTE LYMPHOCYTIC LEUKAEMIA
     Dosage: 12.5 MG, 1X/DAY:QD
     Route: 037
     Dates: start: 20171130, end: 20171228
  5. 6-MERCAPTOPURINE MONOHYDRATE [Suspect]
     Active Substance: MERCAPTOPURINE
     Indication: ACUTE LYMPHOCYTIC LEUKAEMIA
     Dosage: 40 MG, 1X/DAY:QD
     Route: 048
     Dates: start: 20171127
  6. 6-MERCAPTOPURINE MONOHYDRATE [Suspect]
     Active Substance: MERCAPTOPURINE
     Dosage: UNK
     Route: 048
     Dates: start: 20171228, end: 20180103
  7. ONCASPAR [Suspect]
     Active Substance: PEGASPARGASE
     Indication: ACUTE LYMPHOCYTIC LEUKAEMIA
     Dosage: 1600 IU, 1X/DAY:QD
     Route: 042
     Dates: start: 20171003, end: 20171120
  8. CYTARABINE. [Suspect]
     Active Substance: CYTARABINE
     Dosage: 25 UNK, UNK
     Route: 037
     Dates: start: 20171130, end: 20171228
  9. VINCRISTINE SULFATE. [Suspect]
     Active Substance: VINCRISTINE SULFATE
     Indication: ACUTE LYMPHOCYTIC LEUKAEMIA
     Dosage: 0.9 MG, 1X/DAY:QD
     Route: 042
     Dates: start: 20171211

REACTIONS (1)
  - Febrile bone marrow aplasia [Recovered/Resolved]

NARRATIVE: CASE EVENT DATE: 20171228
